FAERS Safety Report 6124993-X (Version None)
Quarter: 2009Q1

REPORT INFORMATION
  Report Type: 
  Country: None (occurrence: None)
  Receive Date: 20090319
  Receipt Date: 20090317
  Transmission Date: 20090719
  Serious: Yes (Hospitalization)
  Sender: FDA-Public Use
  Company Number: US-BRISTOL-MYERS SQUIBB COMPANY-14520662

PATIENT
  Age: 62 Year
  Sex: Female

DRUGS (1)
  1. DASATINIB [Suspect]
     Indication: SARCOMA

REACTIONS (4)
  - DEHYDRATION [None]
  - DIARRHOEA [None]
  - HEADACHE [None]
  - NAUSEA [None]
